FAERS Safety Report 7422228-9 (Version None)
Quarter: 2011Q2

REPORT INFORMATION
  Report Type: 
  Country: None (occurrence: None)
  Receive Date: 20110418
  Receipt Date: 20110404
  Transmission Date: 20111010
  Serious: Yes (Other)
  Sender: FDA-Public Use
  Company Number: US-BAYER-201020402NA

PATIENT
  Sex: Female
  Weight: 104.5 kg

DRUGS (18)
  1. OMNISCAN [Suspect]
     Indication: PRODUCT USED FOR UNKNOWN INDICATION
  2. PROHANCE [Suspect]
     Indication: PRODUCT USED FOR UNKNOWN INDICATION
  3. VITAMIN D [Concomitant]
  4. MYCOPHENOLATE MOFETIL [Concomitant]
  5. MULTIHANCE [Suspect]
     Indication: PRODUCT USED FOR UNKNOWN INDICATION
  6. SENSIPAR [Concomitant]
  7. IRON [Concomitant]
     Dates: start: 20060201, end: 20090801
  8. ARANESP [Concomitant]
     Route: 042
  9. COUMADIN [Concomitant]
  10. LASIX [Concomitant]
  11. RENAGEL [Concomitant]
     Dosage: WITH MEALS
  12. PROGRAF [Concomitant]
     Dosage: 4 TABLETS TWICE DAILY
  13. MAGNEVIST [Suspect]
     Indication: PRODUCT USED FOR UNKNOWN INDICATION
  14. PHOSLO [Concomitant]
  15. RENA-VITE [Concomitant]
  16. METOPROLOL [Concomitant]
     Dates: start: 20090901
  17. OPTIMARK [Suspect]
     Indication: PRODUCT USED FOR UNKNOWN INDICATION
  18. EPOGEN [Concomitant]
     Dates: start: 20060901, end: 20090801

REACTIONS (10)
  - PAIN [None]
  - PAIN IN EXTREMITY [None]
  - SKIN PLAQUE [None]
  - ERYTHEMA [None]
  - PAIN OF SKIN [None]
  - NEPHROGENIC SYSTEMIC FIBROSIS [None]
  - FIBROSIS [None]
  - MOBILITY DECREASED [None]
  - GENERAL PHYSICAL HEALTH DETERIORATION [None]
  - SKIN HYPERTROPHY [None]
